FAERS Safety Report 16254225 (Version 1)
Quarter: 2019Q2

REPORT INFORMATION
  Report Type: Spontaneous
  Country: US (occurrence: US)
  Receive Date: 20190430
  Receipt Date: 20190430
  Transmission Date: 20190711
  Serious: Yes (Life-Threatening, Other)
  Sender: FDA-Public Use
  Company Number: PHHY2019US097464

PATIENT
  Age: 69 Year
  Sex: Female

DRUGS (2)
  1. DILTIAZEM. [Suspect]
     Active Substance: DILTIAZEM
     Indication: ATRIAL FIBRILLATION
     Route: 065
  2. RIVAROXABAN [Interacting]
     Active Substance: RIVAROXABAN
     Indication: ATRIAL FIBRILLATION
     Route: 065

REACTIONS (8)
  - Dyspnoea [Unknown]
  - Dizziness [Unknown]
  - Drug interaction [Unknown]
  - Pericardial effusion [Recovering/Resolving]
  - Drug level increased [Unknown]
  - Atrial fibrillation [Unknown]
  - Pericardial haemorrhage [Recovering/Resolving]
  - Hypotension [Unknown]
